FAERS Safety Report 14372134 (Version 1)
Quarter: 2018Q1

REPORT INFORMATION
  Report Type: Spontaneous
  Country: FR (occurrence: FR)
  Receive Date: 20180110
  Receipt Date: 20180110
  Transmission Date: 20180509
  Serious: Yes (Hospitalization, Other)
  Sender: FDA-Public Use
  Company Number: FR-TEVA-2018-FR-845283

PATIENT

DRUGS (13)
  1. VALIUM [Suspect]
     Active Substance: DIAZEPAM
     Indication: PRODUCT USED FOR UNKNOWN INDICATION
     Dosage: 5 MG,1 DF QD
     Route: 065
     Dates: start: 20150711, end: 20150815
  2. ABILIFY MAINTENA [Suspect]
     Active Substance: ARIPIPRAZOLE
     Indication: PRODUCT USED FOR UNKNOWN INDICATION
     Dosage: 400 MG, QM
     Route: 030
     Dates: start: 20150730
  3. LOXAPAC [Suspect]
     Active Substance: LOXAPINE
     Indication: PRODUCT USED FOR UNKNOWN INDICATION
     Dosage: 300 MG, PER DAY
     Route: 048
     Dates: start: 20150711, end: 20150815
  4. OLANZAPINE. [Concomitant]
     Active Substance: OLANZAPINE
     Indication: PRODUCT USED FOR UNKNOWN INDICATION
     Dosage: 10 MILLIGRAM DAILY; 10 MG, QD
     Route: 065
     Dates: start: 20150711, end: 20150811
  5. LOXAPAC [Suspect]
     Active Substance: LOXAPINE
     Indication: PRODUCT USED FOR UNKNOWN INDICATION
     Dosage: 50, 2 INJECTIONS PER DAY
     Route: 065
     Dates: start: 20150711
  6. OLANZAPINE. [Suspect]
     Active Substance: OLANZAPINE
     Indication: PRODUCT USED FOR UNKNOWN INDICATION
     Dosage: 10 MILLIGRAM DAILY; 10 MG, QD
     Route: 065
     Dates: start: 20150711, end: 20150811
  7. ABILIFY [Suspect]
     Active Substance: ARIPIPRAZOLE
     Indication: PRODUCT USED FOR UNKNOWN INDICATION
     Dosage: 60 MILLIGRAM DAILY; 15 MG, BID
     Route: 048
  8. ZOPICLONE [Concomitant]
     Active Substance: ZOPICLONE
     Indication: PRODUCT USED FOR UNKNOWN INDICATION
     Dosage: UNK, PRN
     Route: 065
     Dates: end: 20150815
  9. ZOPICLONE [Suspect]
     Active Substance: ZOPICLONE
     Indication: PRODUCT USED FOR UNKNOWN INDICATION
     Dosage: 1 DF/DAY IN NEED
     Route: 065
     Dates: start: 20150711, end: 20150815
  10. ABILIFY [Suspect]
     Active Substance: ARIPIPRAZOLE
     Dosage: 20 MG, BID
     Route: 048
     Dates: start: 20150711, end: 20150813
  11. ZOLPIDEM [Concomitant]
     Active Substance: ZOLPIDEM\ZOLPIDEM TARTRATE
     Indication: PRODUCT USED FOR UNKNOWN INDICATION
     Dosage: UNK, PRN
  12. ZOLPIDEM [Concomitant]
     Active Substance: ZOLPIDEM\ZOLPIDEM TARTRATE
     Indication: PRODUCT USED FOR UNKNOWN INDICATION
     Dosage: UNK, PRN
     Route: 048
  13. ZOLPIDEM [Concomitant]
     Active Substance: ZOLPIDEM\ZOLPIDEM TARTRATE
     Indication: PRODUCT USED FOR UNKNOWN INDICATION
     Dosage: UNK, UPON NEED
     Route: 048
     Dates: start: 20150825

REACTIONS (5)
  - Pyelonephritis [Unknown]
  - Pancytopenia [Recovered/Resolved]
  - Septic shock [Unknown]
  - Off label use [Unknown]
  - Erysipelas [Unknown]

NARRATIVE: CASE EVENT DATE: 201508
